FAERS Safety Report 23844939 (Version 1)
Quarter: 2024Q2

REPORT INFORMATION
  Report Type: Spontaneous
  Country: CN (occurrence: CN)
  Receive Date: 20240511
  Receipt Date: 20240511
  Transmission Date: 20240716
  Serious: Yes (Other)
  Sender: FDA-Public Use
  Company Number: CN-EPICPHARMA-CN-2024EPCLIT00452

PATIENT
  Age: 29 Year
  Sex: Male

DRUGS (6)
  1. LORAZEPAM [Suspect]
     Active Substance: LORAZEPAM
     Indication: Mitochondrial encephalomyopathy
     Route: 065
  2. LEVETIRACETAM [Suspect]
     Active Substance: LEVETIRACETAM
     Indication: Mitochondrial encephalomyopathy
     Route: 065
  3. VITAMIN B2 [Suspect]
     Active Substance: RIBOFLAVIN
     Indication: Mitochondrial encephalomyopathy
     Route: 065
  4. .ALPHA.-TOCOPHEROL [Suspect]
     Active Substance: .ALPHA.-TOCOPHEROL
     Indication: Mitochondrial encephalomyopathy
     Route: 065
  5. METHYLCOBALAMIN [Suspect]
     Active Substance: METHYLCOBALAMIN
     Indication: Mitochondrial encephalomyopathy
     Route: 065
  6. IDEBENONE [Suspect]
     Active Substance: IDEBENONE
     Indication: Mitochondrial encephalomyopathy
     Route: 065

REACTIONS (2)
  - Cataract nuclear [Recovered/Resolved]
  - Product use in unapproved indication [Unknown]
